FAERS Safety Report 15790834 (Version 4)
Quarter: 2019Q1

REPORT INFORMATION
  Report Type: Spontaneous
  Country: US (occurrence: US)
  Receive Date: 20190104
  Receipt Date: 20190313
  Transmission Date: 20190417
  Serious: Yes (Death, Hospitalization)
  Sender: FDA-Public Use
  Company Number: US-ACTELION-A-NJ2018-184191

PATIENT
  Age: 82 Year
  Sex: Female

DRUGS (4)
  1. TYVASO [Concomitant]
     Active Substance: TREPROSTINIL
     Dosage: UNK
  2. ADEMPAS [Concomitant]
     Active Substance: RIOCIGUAT
  3. OPSUMIT [Suspect]
     Active Substance: MACITENTAN
     Indication: PULMONARY ARTERIAL HYPERTENSION
     Dosage: 10 MG, QD
     Route: 048
     Dates: start: 20181114, end: 20190221
  4. TADALAFIL. [Concomitant]
     Active Substance: TADALAFIL
     Dosage: UNK

REACTIONS (5)
  - Chest pain [Not Recovered/Not Resolved]
  - Oedema peripheral [Unknown]
  - Chills [Unknown]
  - Disease progression [Fatal]
  - Syncope [Not Recovered/Not Resolved]

NARRATIVE: CASE EVENT DATE: 20181221
